FAERS Safety Report 7727611-X (Version None)
Quarter: 2011Q3

REPORT INFORMATION
  Report Type: 
  Country: None (occurrence: None)
  Receive Date: 20110902
  Receipt Date: 20110824
  Transmission Date: 20111222
  Serious: Yes (Other)
  Sender: FDA-Public Use
  Company Number: PHHY2011US58135

PATIENT
  Sex: Female

DRUGS (5)
  1. GILENYA [Suspect]
     Indication: MULTIPLE SCLEROSIS
     Dosage: 0.5 MG, QD
     Route: 048
     Dates: start: 20110401, end: 20110621
  2. LUNESTA [Concomitant]
     Indication: INSOMNIA
     Dosage: UNK UKN, QD
     Dates: start: 20090101
  3. LEXAPRO [Concomitant]
     Indication: DEPRESSION
     Dosage: 20 G, UNK
     Dates: start: 20100101
  4. NUVIGIL [Concomitant]
     Indication: NARCOLEPSY
     Dosage: 200 G, UNK
     Dates: start: 20100101
  5. NEURONTIN [Concomitant]
     Indication: NEURALGIA
     Dosage: 300 G, PRN
     Dates: start: 20100101

REACTIONS (5)
  - WEIGHT DECREASED [None]
  - VOMITING [None]
  - NAUSEA [None]
  - DECREASED APPETITE [None]
  - HYPOAESTHESIA [None]
